FAERS Safety Report 18173772 (Version 1)
Quarter: 2020Q3

REPORT INFORMATION
  Report Type: Spontaneous
  Country: US (occurrence: US)
  Receive Date: 20200819
  Receipt Date: 20200819
  Transmission Date: 20201104
  Serious: Yes (Life-Threatening, Other)
  Sender: FDA-Public Use
  Company Number: US-SA-2020SA215781

PATIENT

DRUGS (30)
  1. FENTANYL. [Suspect]
     Active Substance: FENTANYL
     Dosage: UNK
     Route: 065
     Dates: start: 20200517
  2. MACROGOL [Suspect]
     Active Substance: POLYETHYLENE GLYCOLS
     Dosage: UNK
     Route: 065
     Dates: start: 20200520
  3. DOCUSATE SODIUM;SENNA [Suspect]
     Active Substance: DOCUSATE SODIUM\SENNOSIDES
     Dosage: UNK
     Route: 065
     Dates: start: 20200520
  4. LEVETIRACETAM. [Suspect]
     Active Substance: LEVETIRACETAM
     Dosage: UNK
     Route: 065
     Dates: start: 20200517
  5. PANTOPRAZOLE [Suspect]
     Active Substance: PANTOPRAZOLE
     Dosage: UNK
     Route: 065
     Dates: start: 20200510
  6. LACTULOSE. [Suspect]
     Active Substance: LACTULOSE
     Dosage: UNK
     Route: 065
     Dates: start: 20200521
  7. CHLORHEXIDINE SALT NOT SPECIFIED [Suspect]
     Active Substance: CHLORHEXIDINE
     Dosage: UNK
     Route: 065
     Dates: start: 20200516
  8. MEROPENEM. [Suspect]
     Active Substance: MEROPENEM
     Route: 065
  9. TOCILIZUMAB. [Suspect]
     Active Substance: TOCILIZUMAB
     Dosage: UNK
     Route: 065
     Dates: start: 20200521, end: 20200521
  10. DUONEB [Suspect]
     Active Substance: ALBUTEROL SULFATE\IPRATROPIUM BROMIDE
     Dosage: UNK
     Route: 065
     Dates: start: 20200517
  11. SUBOXONE [Suspect]
     Active Substance: BUPRENORPHINE HYDROCHLORIDE\NALOXONE HYDROCHLORIDE
     Dosage: UNK
     Dates: start: 20200509, end: 20200518
  12. VANCOMYCIN [Suspect]
     Active Substance: VANCOMYCIN
     Dosage: UNK
     Route: 065
     Dates: start: 20200519
  13. NICOTINE. [Suspect]
     Active Substance: NICOTINE
     Dosage: UNK
     Route: 065
     Dates: start: 20200510
  14. SODIUM POLYSTYRENE SULFONATE. [Suspect]
     Active Substance: SODIUM POLYSTYRENE SULFONATE
     Dosage: UNK
     Dates: start: 20200602, end: 20200602
  15. REMDESIVIR. [Suspect]
     Active Substance: REMDESIVIR
     Indication: COVID-19
     Dosage: UNK
     Route: 042
     Dates: start: 20200517, end: 20200526
  16. CEFTRIAXONE. [Suspect]
     Active Substance: CEFTRIAXONE
     Dosage: UNK
     Route: 065
     Dates: start: 20200516, end: 20200519
  17. METHYLPREDNISOLONE. [Suspect]
     Active Substance: METHYLPREDNISOLONE
     Dosage: UNK
     Route: 065
     Dates: start: 20200521, end: 20200521
  18. OTEZLA [Suspect]
     Active Substance: APREMILAST
     Dosage: UNK
     Route: 065
     Dates: start: 2020
  19. DULOXETINE HYDROCHLORIDE. [Suspect]
     Active Substance: DULOXETINE HYDROCHLORIDE
     Dosage: UNK
     Route: 065
     Dates: start: 20200510
  20. METOPROLOL SALT NOT SPECIFIED [Suspect]
     Active Substance: METOPROLOL
     Dosage: UNK
     Route: 065
     Dates: start: 20200515
  21. PROPOFOL. [Suspect]
     Active Substance: PROPOFOL
     Dosage: UNK
     Route: 065
     Dates: start: 20200517
  22. FUROSEMIDE. [Suspect]
     Active Substance: FUROSEMIDE
     Dosage: UNK
     Route: 065
     Dates: start: 20200518, end: 20200521
  23. FERROUS SULFATE. [Suspect]
     Active Substance: FERROUS SULFATE
     Dosage: UNK
     Route: 065
     Dates: start: 20200510, end: 20200519
  24. LORAZEPAM. [Suspect]
     Active Substance: LORAZEPAM
     Dosage: UNK
     Route: 065
     Dates: start: 20200521
  25. DEXTROMETHORPHAN HYDROBROMIDE. [Suspect]
     Active Substance: DEXTROMETHORPHAN HYDROBROMIDE
     Dosage: UNK
     Route: 065
     Dates: start: 20200509
  26. CEFEPIME HYDROCHLORIDE. [Suspect]
     Active Substance: CEFEPIME HYDROCHLORIDE
     Dosage: UNK
     Route: 065
     Dates: start: 20200519
  27. ACETAMINOPHEN. [Suspect]
     Active Substance: ACETAMINOPHEN
     Dosage: UNK
     Route: 065
     Dates: start: 20200509
  28. LOVENOX [Suspect]
     Active Substance: ENOXAPARIN SODIUM
     Indication: PROPHYLAXIS
     Dosage: 80 MG
     Route: 058
     Dates: start: 20200509
  29. GABAPENTIN. [Suspect]
     Active Substance: GABAPENTIN
     Dosage: UNK
     Route: 065
     Dates: start: 20200509
  30. MIDAZOLAM. [Suspect]
     Active Substance: MIDAZOLAM
     Dosage: UNK
     Route: 065
     Dates: start: 20200517

REACTIONS (15)
  - Shock haemorrhagic [Recovered/Resolved]
  - Retroperitoneal haematoma [Recovering/Resolving]
  - Hypotension [Recovered/Resolved]
  - Liver injury [Recovering/Resolving]
  - Lactic acidosis [Recovered/Resolved]
  - Acute kidney injury [Not Recovered/Not Resolved]
  - Iron deficiency [Not Recovered/Not Resolved]
  - Septic shock [Recovering/Resolving]
  - Haemoglobin decreased [Recovering/Resolving]
  - Hyperkalaemia [Recovered/Resolved]
  - Swelling [Not Recovered/Not Resolved]
  - Disseminated intravascular coagulation [Recovering/Resolving]
  - Bradycardia [Not Recovered/Not Resolved]
  - Cytokine storm [Not Recovered/Not Resolved]
  - Hyperglycaemia [Not Recovered/Not Resolved]

NARRATIVE: CASE EVENT DATE: 20200510
